FAERS Safety Report 22377810 (Version 3)
Quarter: 2024Q2

REPORT INFORMATION
  Report Type: Report from Study
  Country: US (occurrence: US)
  Receive Date: 20230529
  Receipt Date: 20240401
  Transmission Date: 20240715
  Serious: Yes (Death, Other)
  Sender: FDA-Public Use
  Company Number: US-ABBVIE-5182951

PATIENT
  Age: 56 Year
  Sex: Female

DRUGS (26)
  1. VENCLEXTA [Suspect]
     Active Substance: VENETOCLAX
     Indication: Chronic myeloid leukaemia
     Dosage: FORM STRENGTH WAS 100 MILLIGRAMS, LAST ADMIN DATE- 2023
     Route: 048
     Dates: start: 20230513
  2. PROAIR HFA [Concomitant]
     Active Substance: ALBUTEROL SULFATE
     Indication: Dyspnoea
     Dosage: RESPIRATORY (INHALATION),  108 (90 BASE) MCG / ACT INHALER, INHALE 2 PUFFS INTO THE LUNGS
  3. VOLTAREN [Concomitant]
     Active Substance: DICLOFENAC SODIUM
     Indication: Product used for unknown indication
     Dosage: FORM STRENGTH: 1 PERCENT
     Route: 061
  4. PROVENTIL [Concomitant]
     Active Substance: ALBUTEROL
     Indication: Wheezing
     Dosage: RESPIRATORY (INHALATION),  108 (90 BASE) MCG / ACT INHALER, INHALE 2 PUFFS INTO THE LUNGS
  5. DURAGESIC [Concomitant]
     Active Substance: FENTANYL
     Indication: Product used for unknown indication
     Dosage: PLACE 1 PATCH ON TO THE SKIN EVERY 72 HOURS FOR 30 DAYS. MAX DAILY AMOUNT 1 PATCH?FORM STRENGTH: ...
     Route: 062
  6. COLACE [Concomitant]
     Active Substance: DOCUSATE SODIUM
     Indication: Product used for unknown indication
     Dosage: TAKE 100 MY BY MOUTH 2 TIMES DAILY?FORM STRENGTH: 100  MILLIGRAM
     Route: 048
  7. CIPRO [Concomitant]
     Active Substance: CIPROFLOXACIN HYDROCHLORIDE
     Indication: Product used for unknown indication
     Dosage: TAKE 1 TAB BY MOUTH TWICE DAILY?FORM STRENGTH: 500  MILLIGRAM
     Route: 048
  8. HYDRODIURIL [Concomitant]
     Active Substance: HYDROCHLOROTHIAZIDE
     Indication: Product used for unknown indication
     Dosage: TAKE 1 TAB BY MOUTH DAILY?FORM STRENGTH: 25 MILLIGRAM
     Route: 048
  9. REQUIP [Concomitant]
     Active Substance: ROPINIROLE HYDROCHLORIDE
     Indication: Product used for unknown indication
     Dosage: TAKE 1 TAB BY MOUTH NIGHTLY?FORM STRENGTH: 0.25 MILLIGRAM
     Route: 048
  10. REQUIP [Concomitant]
     Active Substance: ROPINIROLE HYDROCHLORIDE
     Indication: Product used for unknown indication
     Dosage: TAKE 1 TAB BY MOUTH TWICE DAILY?FORM STRENGTH: 2 MILLIGRAM
     Route: 048
  11. VITAMIN B COMPLEX [Concomitant]
     Active Substance: CYANOCOBALAMIN\DEXPANTHENOL\NIACINAMIDE\PYRIDOXINE HYDROCHLORIDE\RIBOFLAVIN 5^-PHOSPHATE SODIUM\THIA
     Indication: Product used for unknown indication
     Dosage: TAKE 1 CAP BY MOUTH DAILY
     Route: 048
  12. FOLVITE [Concomitant]
     Active Substance: FOLIC ACID
     Indication: Product used for unknown indication
     Dosage: TAKE 1 TAB BY MOUTH IN THE MORNING AND AT BEDTIME FOR 28 DOSES?FORM STRENGTH: 1 MILLIGRAM
     Route: 048
  13. Dulcolax [Concomitant]
     Indication: Product used for unknown indication
     Dosage: TAKE 100 MY BY MOUTH 2 TIMES DAILY?FORM STRENGTH: 100 MILLIGRAM
     Route: 048
  14. VENTOLIN [Concomitant]
     Active Substance: ALBUTEROL SULFATE
     Indication: Wheezing
     Dosage: RESPIRATORY (INHALATION),  108 (90 BASE) MCG / ACT INHALER, INHALE 2 PUFFS INTO THE LUNGS
  15. SPIRIVA RESPIMAT [Concomitant]
     Active Substance: TIOTROPIUM BROMIDE
     Indication: Product used for unknown indication
     Dosage: RESPIRATORY (INHALATION), 2.5 MCG / ACT AERS INHALER, INHALE 2 PUFFS INTO THE LUNGS DAILY
  16. PHENERGAN [Concomitant]
     Active Substance: PROMETHAZINE HYDROCHLORIDE
     Indication: Product used for unknown indication
     Dosage: TAKE 1 TAB BY MOUTH EVERY 6 HOURS AS NEEDED FOR NAUSEA?- FORM STRENGTH: 25 MILLIGRAM
     Route: 048
  17. DUONEB [Concomitant]
     Active Substance: ALBUTEROL SULFATE\IPRATROPIUM BROMIDE
     Indication: Wheezing
     Dosage: RESPIRATORY (INHALATION), 0.5-2.5 (3) MG / 3ML SOL NEBULIZER SOLUTION, INHALE 3 MLS INTO THE LUNGS
  18. MAGNESIUM CARBONATE [Concomitant]
     Active Substance: MAGNESIUM CARBONATE
     Indication: Product used for unknown indication
     Dosage: TAKE 1 TABLET BY MOUTH 2 TIMES DAILY?FORM STRENGTH: 500 MILLIGRAM
     Route: 048
  19. NICODERM CQ [Concomitant]
     Active Substance: NICOTINE
     Indication: Product used for unknown indication
     Dosage: 21MG/ 24 HR, PLACE 1 PATCH ONTO THE SKIN EVERY 24 HOURS
  20. PERCOCET [Concomitant]
     Active Substance: ACETAMINOPHEN\OXYCODONE HYDROCHLORIDE
     Indication: Pain
     Dosage: TAKE 1 TAB BY MOUTH EVERY 6 HRS AS NEEDED FOR PAIN FOR UP TO 30 DAYS
     Route: 048
  21. ZOFRAN [Concomitant]
     Active Substance: ONDANSETRON HYDROCHLORIDE
     Indication: Vomiting
     Dosage: TAKE 1 TAB BY MOUTH EVERY 8 HOURS AS NEEDED FOR NAUSEA OR VOMITING?FORM STRENGTH: 8  MILLIGRAM
     Route: 048
  22. PEPCID [Concomitant]
     Active Substance: FAMOTIDINE
     Indication: Product used for unknown indication
     Dosage: TAKE 1 TAB BY MOUTH 2 TIMES DAILY?FORM STRENGTH: 20  MILLIGRAM
     Route: 048
  23. VITAMIN D3 [Concomitant]
     Active Substance: CHOLECALCIFEROL
     Indication: Product used for unknown indication
     Dosage: TAKE 1 CAP BY MOUTH EVERY 30 DAYS?FORM STRENGTH: 50000 UNIT
     Route: 048
  24. WELLBUTRIN XL [Concomitant]
     Active Substance: BUPROPION HYDROCHLORIDE
     Indication: Product used for unknown indication
     Dosage: TAKE 1 TAB BY MOUTH 2 TIMES DAILY FOR DAYS 1-3?FORM STRENGTH: 150  MILLIGRAM
     Route: 048
  25. WELLBUTRIN XL [Concomitant]
     Active Substance: BUPROPION HYDROCHLORIDE
     Indication: Product used for unknown indication
     Dosage: TAKE ONLY 1 TAB DAILY AND ON DAY 4 INCREASE TO TWICE DAILY?FORM STRENGTH: 150  MILLIGRAM
     Route: 048
  26. BENEFIBER [Concomitant]
     Active Substance: STARCH, WHEAT
     Indication: Product used for unknown indication
     Dosage: TIME INTERVAL: 0.33333333 DAYS: TAKE 4 G BY MOUTH 3 TIMES DAILY (WITH MEALS)
     Route: 048

REACTIONS (5)
  - Death [Fatal]
  - Transfusion [Unknown]
  - Platelet transfusion [Unknown]
  - Off label use [Unknown]
  - Hospice care [Unknown]

NARRATIVE: CASE EVENT DATE: 20230501
